FAERS Safety Report 6084905-4 (Version None)
Quarter: 2009Q1

REPORT INFORMATION
  Report Type: 
  Country: None (occurrence: None)
  Receive Date: 20090220
  Receipt Date: 20090213
  Transmission Date: 20090719
  Serious: Yes (Other)
  Sender: FDA-Public Use
  Company Number: PHBS2009US00818

PATIENT
  Age: 15 Year
  Sex: Male

DRUGS (1)
  1. ZOLEDRONIC ACID [Suspect]
     Indication: OSTEOPENIA
     Dosage: 0.1 MG/KG, TOTAL DOSE 4 MG
     Route: 042

REACTIONS (3)
  - CONFUSIONAL STATE [None]
  - DYSARTHRIA [None]
  - HYPOCALCAEMIA [None]
